FAERS Safety Report 17630472 (Version 2)
Quarter: 2020Q2

REPORT INFORMATION
  Report Type: Spontaneous
  Country: JP (occurrence: JP)
  Receive Date: 20200406
  Receipt Date: 20200526
  Transmission Date: 20200713
  Serious: Yes (Disabling)
  Sender: FDA-Public Use
  Company Number: JP-009507513-2004JPN000031J

PATIENT
  Age: 50 Year
  Sex: Female
  Weight: 48 kg

DRUGS (10)
  1. TAKECAB [Concomitant]
     Active Substance: VONOPRAZAN FUMARATE
     Dosage: UNK
     Route: 048
  2. ROSUVASTATIN. [Concomitant]
     Active Substance: ROSUVASTATIN
     Dosage: UNK
     Route: 048
  3. EXCEGRAN [Concomitant]
     Active Substance: ZONISAMIDE
     Dosage: UNK
     Route: 048
  4. TSUMURA KAMIKIHITO EXTRACT GRANULES FOR ETHICAL USE [Concomitant]
     Dosage: UNK
     Route: 048
  5. PHOSRIBBON [Concomitant]
     Dosage: UNK
     Route: 048
  6. TEMODAL [Suspect]
     Active Substance: TEMOZOLOMIDE
     Indication: GLIOMA
     Dosage: 220 MILLIGRAM, QD
     Route: 048
     Dates: start: 20160728, end: 20190901
  7. E KEPPRA [Concomitant]
     Active Substance: LEVETIRACETAM
     Dosage: UNK
     Route: 048
  8. CARBAZOCHROME SULFONATE NA [Concomitant]
     Dosage: UNK
     Route: 048
  9. PREDONINE [Concomitant]
     Active Substance: PREDNISOLONE
     Dosage: UNK
     Route: 048
  10. LAC-B [Concomitant]
     Active Substance: BIFIDOBACTERIUM SPP.
     Dosage: UNK
     Route: 048

REACTIONS (1)
  - Leukaemia [Not Recovered/Not Resolved]

NARRATIVE: CASE EVENT DATE: 20191130
